FAERS Safety Report 4395413-0 (Version None)
Quarter: 2004Q3

REPORT INFORMATION
  Report Type: 
  Country: None (occurrence: None)
  Receive Date: 20040712
  Receipt Date: 20040712
  Transmission Date: 20050211
  Serious: Yes (Hospitalization)
  Sender: FDA-Public Use
  Company Number: None

PATIENT
  Age: 79 Year
  Sex: Male
  Weight: 83.46 kg

DRUGS (4)
  1. OMNIPAQUE 300 [Suspect]
     Indication: CATHETERISATION CARDIAC
     Dosage: 300 ML  ONCE INTRAVENOUS
     Route: 042
     Dates: start: 20040706, end: 20040706
  2. OMNIPAQUE 300 [Suspect]
     Indication: SCAN WITH CONTRAST
     Dosage: 300 ML  ONCE INTRAVENOUS
     Route: 042
     Dates: start: 20040706, end: 20040706
  3. ANGIOMAX [Concomitant]
  4. NITROGLYCERIN [Concomitant]

REACTIONS (3)
  - ELECTROCARDIOGRAM ST SEGMENT ELEVATION [None]
  - PROCEDURAL COMPLICATION [None]
  - VASCULAR GRAFT OCCLUSION [None]
